FAERS Safety Report 5914949-1 (Version None)
Quarter: 2008Q4

REPORT INFORMATION
  Report Type: 
  Country: None (occurrence: None)
  Receive Date: 20081008
  Receipt Date: 20080923
  Transmission Date: 20090506
  Serious: Yes (Other)
  Sender: FDA-Public Use
  Company Number: 239118J08USA

PATIENT
  Age: 55 Year
  Sex: Male
  Weight: 66 kg

DRUGS (2)
  1. REBIF [Suspect]
     Indication: MULTIPLE SCLEROSIS
     Dosage: 22 MCG, 3 IN 1 WEEKS, SUBCUTANEOUS
     Route: 058
     Dates: start: 20071022
  2. DEPAKOTE [Concomitant]

REACTIONS (2)
  - BASAL CELL CARCINOMA [None]
  - RECURRENT CANCER [None]
